FAERS Safety Report 4938643-9 (Version None)
Quarter: 2006Q1

REPORT INFORMATION
  Report Type: 
  Country: None (occurrence: None)
  Receive Date: 20060306
  Receipt Date: 20060222
  Transmission Date: 20060701
  Serious: Yes (Other)
  Sender: FDA-Public Use
  Company Number: PCA0534753

PATIENT
  Age: 59 Year
  Sex: Female
  Weight: 66.2252 kg

DRUGS (4)
  1. NICOTINE POLACRILEX GUM-MINT, 2 MG, PERRIGO [Suspect]
     Indication: SMOKING CESSATION THERAPY
     Dosage: 2 MG, VARIABLE, ORAL
     Route: 048
  2. ZOCOR [Concomitant]
  3. SYNTHROID [Concomitant]
  4. TOPROL [Concomitant]

REACTIONS (6)
  - DYSPHAGIA [None]
  - DYSPHONIA [None]
  - DYSPNOEA [None]
  - ERYTHEMA [None]
  - MALAISE [None]
  - PALATAL OEDEMA [None]
